FAERS Safety Report 8306017-9 (Version None)
Quarter: 2012Q2

REPORT INFORMATION
  Report Type: 
  Country: None (occurrence: None)
  Receive Date: 20120423
  Receipt Date: 20120416
  Transmission Date: 20120825
  Serious: Yes (Hospitalization, Other)
  Sender: FDA-Public Use
  Company Number: DE-PFIZER INC-2012094526

PATIENT
  Age: 79 Year
  Sex: Male

DRUGS (5)
  1. MIRTAZAPINE [Concomitant]
  2. ACICLOVIR [Concomitant]
     Indication: HERPES ZOSTER
     Dosage: 500 MG, 3X/DAY
  3. ZOSTEX [Concomitant]
     Indication: PAIN
     Dosage: UNK
  4. ATORVASTATIN CALCIUM [Concomitant]
     Dosage: UNK MG, UNK
  5. LYRICA [Suspect]
     Dosage: 300 MG, 1X/DAY

REACTIONS (4)
  - PAIN [None]
  - VISUAL IMPAIRMENT [None]
  - HERPES OPHTHALMIC [None]
  - POST HERPETIC NEURALGIA [None]
